FAERS Safety Report 15588514 (Version 2)
Quarter: 2019Q1

REPORT INFORMATION
  Report Type: Report from Study
  Country: JP (occurrence: JP)
  Receive Date: 20181105
  Receipt Date: 20190114
  Transmission Date: 20190417
  Serious: Yes (Other)
  Sender: FDA-Public Use
  Company Number: JP-TAKEDA-2018TJP027419

PATIENT

DRUGS (3)
  1. REVLIMID [Concomitant]
     Active Substance: LENALIDOMIDE
     Indication: PLASMA CELL MYELOMA
     Dosage: UNK
     Route: 048
  2. IXAZOMIB [Suspect]
     Active Substance: IXAZOMIB
     Indication: PLASMA CELL MYELOMA
     Dosage: UNK
     Route: 048
  3. DEXAMETHASONE. [Concomitant]
     Active Substance: DEXAMETHASONE
     Indication: PLASMA CELL MYELOMA
     Dosage: UNK
     Route: 048

REACTIONS (15)
  - Infection [Unknown]
  - Rash [Unknown]
  - Enteritis infectious [Unknown]
  - Diarrhoea [Unknown]
  - Adverse event [Unknown]
  - Anaemia [Unknown]
  - Constipation [Unknown]
  - Lymphocyte count decreased [Unknown]
  - Vomiting [Unknown]
  - Pneumonia [Unknown]
  - Neuropathy peripheral [Unknown]
  - Neutrophil count decreased [Unknown]
  - Herpes zoster [Unknown]
  - Platelet count decreased [Unknown]
  - Nausea [Unknown]
